FAERS Safety Report 8246048-0 (Version None)
Quarter: 2012Q1

REPORT INFORMATION
  Report Type: 
  Country: None (occurrence: None)
  Receive Date: 20120328
  Receipt Date: 20120328
  Transmission Date: 20120608
  Serious: Yes (Hospitalization)
  Sender: FDA-Public Use
  Company Number: None

PATIENT
  Age: 81 Year
  Sex: Male
  Weight: 87.1 kg

DRUGS (1)
  1. PRADAXA [Suspect]
     Indication: ATRIAL FIBRILLATION
     Dosage: 150 MG BID ORAL
     Route: 048
     Dates: start: 20120126, end: 20120129

REACTIONS (3)
  - LOWER GASTROINTESTINAL HAEMORRHAGE [None]
  - COAGULOPATHY [None]
  - HAEMORRHAGIC ANAEMIA [None]
